FAERS Safety Report 4538123-9 (Version None)
Quarter: 2004Q4

REPORT INFORMATION
  Report Type: 
  Country: None (occurrence: None)
  Receive Date: 20041221
  Receipt Date: 20041126
  Transmission Date: 20050328
  Serious: Yes (Other)
  Sender: FDA-Public Use
  Company Number: 2004S1003547

PATIENT
  Age: 5 Year
  Sex: Male

DRUGS (1)
  1. CYSTAGON [Suspect]
     Indication: CYSTINOSIS
     Dosage: 110 MG/KG/D THEN 90 MG/KG/D,ORAL
     Route: 048
     Dates: start: 20040106

REACTIONS (2)
  - MASS [None]
  - SKIN LESION [None]
